FAERS Safety Report 6768111-3 (Version None)
Quarter: 2010Q2

REPORT INFORMATION
  Report Type: 
  Country: None (occurrence: None)
  Receive Date: 20100614
  Receipt Date: 20100609
  Transmission Date: 20101027
  Serious: Yes (Death, Other)
  Sender: FDA-Public Use
  Company Number: GB-SANOFI-AVENTIS-2010SA033333

PATIENT
  Age: 52 Year
  Sex: Female

DRUGS (10)
  1. DOCETAXEL [Suspect]
     Indication: INFLAMMATORY CARCINOMA OF THE BREAST
  2. CLOZARIL [Suspect]
     Indication: SCHIZOPHRENIA
     Route: 048
     Dates: start: 20030909, end: 20060828
  3. CLOZARIL [Suspect]
     Route: 048
     Dates: start: 20061009
  4. CYCLOPHOSPHAMIDE [Suspect]
     Indication: INFLAMMATORY CARCINOMA OF THE BREAST
  5. EPIRUBICIN [Suspect]
     Indication: INFLAMMATORY CARCINOMA OF THE BREAST
  6. AMITRIPTYLINE [Concomitant]
     Indication: DEPRESSION
     Route: 048
  7. CLONAZEPAM [Concomitant]
     Indication: ANXIETY
     Route: 048
  8. ESCITALOPRAM [Concomitant]
     Indication: DEPRESSION
     Route: 048
  9. EZETIMIBE [Concomitant]
     Route: 048
  10. ASACOL [Concomitant]
     Indication: GASTROINTESTINAL DISORDER
     Route: 048

REACTIONS (4)
  - DIABETES MELLITUS [None]
  - LYMPHOCYTE COUNT DECREASED [None]
  - PNEUMONIA [None]
  - WHITE BLOOD CELL COUNT DECREASED [None]
